FAERS Safety Report 25225170 (Version 1)
Quarter: 2025Q2

REPORT INFORMATION
  Report Type: Spontaneous
  Country: US (occurrence: None)
  Receive Date: 20250421
  Receipt Date: 20250421
  Transmission Date: 20250717
  Serious: No
  Sender: FDA-CTU
  Company Number: None

PATIENT
  Age: 47 Year
  Sex: Male

DRUGS (7)
  1. ERIVEDGE [Suspect]
     Active Substance: VISMODEGIB
     Indication: Basal cell carcinoma
     Dosage: FREQUENCY : DAILY;?
     Route: 048
     Dates: start: 20241114
  2. DULOXETINE [Concomitant]
     Active Substance: DULOXETINE
  3. VITAMINS [Concomitant]
     Active Substance: VITAMINS
  4. IRON [Concomitant]
     Active Substance: IRON
  5. VITAMIN B12 [Concomitant]
     Active Substance: CYANOCOBALAMIN
  6. SAW PALMETO [Concomitant]
  7. TESTOSTERONE 1% PUMP [Concomitant]

REACTIONS (3)
  - Fatigue [None]
  - Alopecia [None]
  - Taste disorder [None]

NARRATIVE: CASE EVENT DATE: 20241215
